FAERS Safety Report 17725940 (Version 36)
Quarter: 2024Q1

REPORT INFORMATION
  Report Type: Report from Study
  Country: CA (occurrence: CA)
  Receive Date: 20200429
  Receipt Date: 20240328
  Transmission Date: 20240410
  Serious: Yes (Hospitalization, Other)
  Sender: FDA-Public Use
  Company Number: NVSC2020CA115612

PATIENT
  Age: 71 Year
  Sex: Female

DRUGS (5)
  1. SANDOSTATIN LAR DEPOT [Suspect]
     Active Substance: OCTREOTIDE ACETATE
     Indication: Acromegaly
     Dosage: 20 MG, Q4W
     Route: 030
     Dates: start: 20191216
  2. SANDOSTATIN LAR DEPOT [Suspect]
     Active Substance: OCTREOTIDE ACETATE
     Dosage: 40 MG, Q4W (4 WEEKS)
     Route: 030
     Dates: start: 20191216
  3. SANDOSTATIN LAR DEPOT [Suspect]
     Active Substance: OCTREOTIDE ACETATE
     Dosage: 40 MG, Q4W
     Route: 030
     Dates: start: 20201126
  4. SANDOSTATIN LAR DEPOT [Suspect]
     Active Substance: OCTREOTIDE ACETATE
     Dosage: 20 MG
     Route: 030
     Dates: start: 20221124
  5. SANDOSTATIN LAR DEPOT [Suspect]
     Active Substance: OCTREOTIDE ACETATE
     Dosage: 20 MG, Q4W
     Route: 030

REACTIONS (27)
  - Hypertension [Unknown]
  - Epilepsy [Unknown]
  - Choking sensation [Unknown]
  - Feeling abnormal [Unknown]
  - Insomnia [Unknown]
  - Thirst [Unknown]
  - Faeces soft [Unknown]
  - Blood pressure systolic increased [Unknown]
  - Anxiety [Unknown]
  - Dysstasia [Unknown]
  - Confusional state [Unknown]
  - Sleep apnoea syndrome [Unknown]
  - Pain [Unknown]
  - Fatigue [Unknown]
  - Malaise [Unknown]
  - Helicobacter infection [Recovering/Resolving]
  - Asthenia [Unknown]
  - Hypotension [Unknown]
  - Dyspepsia [Unknown]
  - Nausea [Unknown]
  - Dyspnoea [Unknown]
  - Dizziness [Unknown]
  - Heart rate decreased [Unknown]
  - Gastrointestinal motility disorder [Recovering/Resolving]
  - Vomiting [Unknown]
  - Blood pressure increased [Unknown]
  - Needle issue [Unknown]

NARRATIVE: CASE EVENT DATE: 20200424
